FAERS Safety Report 10809604 (Version 1)
Quarter: 2015Q1

REPORT INFORMATION
  Report Type: Spontaneous
  Country: US (occurrence: None)
  Receive Date: 20150212
  Receipt Date: 20150212
  Transmission Date: 20150721
  Serious: Yes (Hospitalization)
  Sender: FDA-Public Use
  Company Number: None

PATIENT
  Age: 72 Year
  Sex: Female
  Weight: 91 kg

DRUGS (9)
  1. AMIODARONE (CORDARONE) [Concomitant]
  2. ALBUTEROL. [Concomitant]
     Active Substance: ALBUTEROL
  3. FLUTICASONE-SALMETEROL (ADVAIR) [Concomitant]
  4. ASPIRIN. [Concomitant]
     Active Substance: ASPIRIN
  5. FLUTICASONE (FLONASE) [Concomitant]
  6. ESTRADIOL (CLIMARA) [Concomitant]
  7. CLOPIDOGREL [Suspect]
     Active Substance: CLOPIDOGREL BISULFATE
     Indication: ANGIOGRAM
     Route: 048
  8. APIXABAN [Suspect]
     Active Substance: APIXABAN
     Indication: ATRIAL FIBRILLATION
     Route: 048
  9. AMBIEN [Concomitant]
     Active Substance: ZOLPIDEM TARTRATE

REACTIONS (2)
  - Procedural pain [None]
  - Post procedural haematoma [None]

NARRATIVE: CASE EVENT DATE: 20140319
